FAERS Safety Report 17407139 (Version 1)
Quarter: 2020Q1

REPORT INFORMATION
  Report Type: Spontaneous
  Country: US (occurrence: US)
  Receive Date: 20200211
  Receipt Date: 20200211
  Transmission Date: 20200409
  Serious: Yes (Other)
  Sender: FDA-Public Use
  Company Number: None

PATIENT
  Age: 29 Year
  Sex: Female
  Weight: 65.25 kg

DRUGS (6)
  1. SUNOSI [Concomitant]
     Active Substance: SOLRIAMFETOL
  2. VITAMIN B12 [Concomitant]
     Active Substance: CYANOCOBALAMIN
  3. ADDERALL XR [Concomitant]
     Active Substance: AMPHETAMINE ASPARTATE\AMPHETAMINE SULFATE\DEXTROAMPHETAMINE SACCHARATE\DEXTROAMPHETAMINE SULFATE
  4. EQUATE PAIN RELIEVING ULTRA STRENGTH [Suspect]
     Active Substance: CAMPHOR (SYNTHETIC)\MENTHOL\METHYL SALICYLATE
     Indication: BACK PAIN
     Dosage: ?          QUANTITY:1 APPLICATION;?
     Route: 061
     Dates: start: 20200211, end: 20200211
  5. BUSPAR [Concomitant]
     Active Substance: BUSPIRONE HYDROCHLORIDE
  6. FERROUS SULFATE. [Concomitant]
     Active Substance: FERROUS SULFATE

REACTIONS (6)
  - Chemical burn [None]
  - Skin swelling [None]
  - Skin irritation [None]
  - Skin burning sensation [None]
  - Pain of skin [None]
  - Erythema [None]

NARRATIVE: CASE EVENT DATE: 20200211
